FAERS Safety Report 6934072-7 (Version None)
Quarter: 2010Q3

REPORT INFORMATION
  Report Type: 
  Country: None (occurrence: None)
  Receive Date: 20100820
  Receipt Date: 20100804
  Transmission Date: 20110219
  Serious: No
  Sender: FDA-Public Use
  Company Number: B0621406A

PATIENT
  Sex: Female

DRUGS (6)
  1. RELENZA [Suspect]
     Indication: INFLUENZA
     Dosage: 20MG PER DAY
     Route: 055
     Dates: start: 20091218, end: 20091222
  2. KENTAN [Concomitant]
     Indication: ARTHRALGIA
     Dosage: 180MG PER DAY
     Route: 048
     Dates: start: 20091218, end: 20091224
  3. DASEN [Concomitant]
     Indication: INFLAMMATION
     Dosage: 30MG PER DAY
     Route: 048
     Dates: start: 20091218, end: 20091224
  4. MEDICON [Concomitant]
     Indication: COUGH
     Dosage: 15MG PER DAY
     Route: 048
     Dates: start: 20091218, end: 20091224
  5. CALONAL [Concomitant]
     Indication: ANTIPYRESIS
     Route: 048
     Dates: start: 20091218, end: 20091224
  6. SINGULAIR [Concomitant]
     Indication: COUGH
     Dosage: 10MG PER DAY
     Route: 048
     Dates: start: 20091218, end: 20091224

REACTIONS (1)
  - DRUG EXPOSURE DURING PREGNANCY [None]
